FAERS Safety Report 8553639-6 (Version None)
Quarter: 2012Q3

REPORT INFORMATION
  Report Type: 
  Country: None (occurrence: None)
  Receive Date: 20120731
  Receipt Date: 20120720
  Transmission Date: 20120928
  Serious: Yes (Hospitalization)
  Sender: FDA-Public Use
  Company Number: NL-JNJFOC-20120306061

PATIENT
  Sex: Female
  Weight: 39.7 kg

DRUGS (5)
  1. AZATHIOPRINE [Suspect]
     Indication: PRODUCT USED FOR UNKNOWN INDICATION
     Dates: start: 20111020
  2. AZATHIOPRINE [Suspect]
  3. HUMIRA [Suspect]
     Dates: start: 20111018
  4. HUMIRA [Suspect]
     Indication: PRODUCT USED FOR UNKNOWN INDICATION
     Dates: start: 20110223
  5. REMICADE [Suspect]
     Indication: CROHN'S DISEASE
     Route: 042
     Dates: start: 20061024, end: 20081021

REACTIONS (1)
  - CROHN'S DISEASE [None]
